FAERS Safety Report 5069574-4 (Version None)
Quarter: 2006Q3

REPORT INFORMATION
  Report Type: 
  Country: None (occurrence: None)
  Receive Date: 20060731
  Receipt Date: 20060615
  Transmission Date: 20061208
  Serious: Yes (Hospitalization)
  Sender: FDA-Public Use
  Company Number: DSA_28117_2006

PATIENT
  Age: 77 Year
  Sex: Female

DRUGS (3)
  1. HERBESSER [Suspect]
     Indication: HYPERTENSION
     Dosage: 30 MG QAM PO
     Route: 048
     Dates: start: 20051025, end: 20060404
  2. HERBESSER [Suspect]
     Indication: HYPERTENSION
     Dosage: 60 MG Q DAY PO
     Route: 048
     Dates: start: 20051015
  3. HERBESSER [Suspect]
     Indication: HYPERTENSION
     Dosage: DF
     Dates: start: 20060413

REACTIONS (12)
  - ANOREXIA [None]
  - BLOOD PRESSURE INCREASED [None]
  - DRUG INEFFECTIVE [None]
  - ERYTHEMA MULTIFORME [None]
  - FOOD ALLERGY [None]
  - HYPERSENSITIVITY [None]
  - RASH GENERALISED [None]
  - SKIN DISCOLOURATION [None]
  - SKIN LESION [None]
  - SLEEP DISORDER [None]
  - URTICARIA GENERALISED [None]
  - WHITE BLOOD CELL COUNT INCREASED [None]
